FAERS Safety Report 9105026 (Version 2)
Quarter: 2013Q2

REPORT INFORMATION
  Report Type: Spontaneous
  Country: DE (occurrence: DE)
  Receive Date: 20130219
  Receipt Date: 20130418
  Transmission Date: 20140414
  Serious: Yes (Hospitalization)
  Sender: FDA-Public Use
  Company Number: DE-AMGEN-DEUSP2013011264

PATIENT
  Age: 68 Year
  Sex: Female

DRUGS (3)
  1. ENBREL [Suspect]
     Indication: RHEUMATOID ARTHRITIS
     Dosage: 50 MG, WEEKLY
     Dates: start: 20100901
  2. VOLTAREN                           /00372302/ [Concomitant]
     Dosage: UNK UNK, AS NECESSARY
  3. GLUCOCORTICOIDS [Concomitant]
     Dosage: 5 MG, UNK

REACTIONS (1)
  - Arthropathy [Unknown]
